FAERS Safety Report 4303660-9 (Version None)
Quarter: 2004Q1

REPORT INFORMATION
  Report Type: 
  Country: None (occurrence: None)
  Receive Date: 20040223
  Receipt Date: 20040213
  Transmission Date: 20041129
  Serious: Yes (Other)
  Sender: FDA-Public Use
  Company Number: 2004199258US

PATIENT
  Sex: Female

DRUGS (1)
  1. DEPO-MEDROL [Suspect]

REACTIONS (3)
  - MOVEMENT DISORDER [None]
  - SOFT TISSUE INJURY [None]
  - SWELLING [None]
